FAERS Safety Report 8160665-8 (Version None)
Quarter: 2012Q1

REPORT INFORMATION
  Report Type: 
  Country: None (occurrence: None)
  Receive Date: 20120223
  Receipt Date: 20120210
  Transmission Date: 20120608
  Serious: Yes (Other)
  Sender: FDA-Public Use
  Company Number: BR-ASTRAZENECA-2012SE09649

PATIENT
  Age: 62 Year
  Sex: Male
  Weight: 129.3 kg

DRUGS (5)
  1. ASPIRIN [Concomitant]
     Route: 048
  2. LOSARTAN POTASSIUM [Concomitant]
     Indication: HYPERTENSION
     Route: 048
  3. BRILINTA [Suspect]
     Indication: ANGIOPLASTY
     Route: 048
     Dates: start: 20120120
  4. CLONAZEPAM [Concomitant]
     Dosage: ONCE A DAY
     Route: 048
  5. CAPTOPRIL [Concomitant]
     Indication: HYPERTENSION
     Route: 048
     Dates: start: 20120101

REACTIONS (4)
  - URINARY RETENTION [None]
  - CORONARY ARTERY OCCLUSION [None]
  - FATIGUE [None]
  - DYSPNOEA [None]
